FAERS Safety Report 17727532 (Version 1)
Quarter: 2020Q2

REPORT INFORMATION
  Report Type: Spontaneous
  Country: US (occurrence: US)
  Receive Date: 20200430
  Receipt Date: 20200430
  Transmission Date: 20200714
  Serious: No
  Sender: FDA-Public Use
  Company Number: US-GW PHARMA-202004USGW01563

PATIENT

DRUGS (1)
  1. EPIDIOLEX [Suspect]
     Active Substance: CANNABIDIOL
     Indication: LENNOX-GASTAUT SYNDROME
     Dosage: 150 MILLIGRAM, QD (50 MG IN MORNING AND 100 MG AT BEDTIME)
     Route: 048
     Dates: start: 201909, end: 202004

REACTIONS (2)
  - Seizure [Unknown]
  - Drug ineffective [Unknown]
